FAERS Safety Report 8225224-7 (Version None)
Quarter: 2012Q1

REPORT INFORMATION
  Report Type: 
  Country: None (occurrence: None)
  Receive Date: 20120321
  Receipt Date: 20120309
  Transmission Date: 20120608
  Serious: Yes (Other)
  Sender: FDA-Public Use
  Company Number: SE-BRISTOL-MYERS SQUIBB COMPANY-16463960

PATIENT

DRUGS (1)
  1. REYATAZ [Suspect]

REACTIONS (2)
  - MUSCULAR WEAKNESS [None]
  - MUSCLE ATROPHY [None]
